FAERS Safety Report 16799618 (Version 1)
Quarter: 2019Q3

REPORT INFORMATION
  Report Type: Spontaneous
  Country: US (occurrence: US)
  Receive Date: 20190722
  Receipt Date: 20190722
  Transmission Date: 20191005
  Serious: No
  Sender: FDA-Public Use
  Company Number: None

PATIENT
  Age: 80 Year
  Sex: Female
  Weight: 73.48 kg

DRUGS (6)
  1. PRIOBIOTICS [Concomitant]
  2. VIT D [Concomitant]
     Active Substance: VITAMIN D NOS
  3. PREDNISONE 20MG TABS [Suspect]
     Active Substance: PREDNISONE
     Indication: RASH
     Dosage: 2 TABS DAILY FOR 5 DAYS
     Route: 048
     Dates: start: 20190331, end: 20190404
  4. MESH [Concomitant]
  5. MIRALAX [Concomitant]
     Active Substance: POLYETHYLENE GLYCOL 3350
  6. SLING [Concomitant]

REACTIONS (10)
  - Psoriasis [None]
  - Mouth swelling [None]
  - Gingival pain [None]
  - Immune system disorder [None]
  - Drug ineffective [None]
  - Toothache [None]
  - Swelling of eyelid [None]
  - Tooth loss [None]
  - Lip swelling [None]
  - Noninfective gingivitis [None]
